FAERS Safety Report 8990640 (Version 1)
Quarter: 2012Q4

REPORT INFORMATION
  Report Type: 
  Country: ES (occurrence: ES)
  Receive Date: 20121228
  Receipt Date: 20121228
  Transmission Date: 20130627
  Serious: Yes (Other)
  Sender: FDA-Public Use
  Company Number: ES-JNJFOC-20121212055

PATIENT
  Age: 5 None

DRUGS (2)
  1. DARUNAVIR [Suspect]
     Indication: HIV INFECTION
     Route: 065
  2. RITONAVIR [Concomitant]
     Indication: HIV INFECTION
     Route: 065

REACTIONS (1)
  - Blood bilirubin decreased [Unknown]
